FAERS Safety Report 6693175-5 (Version None)
Quarter: 2010Q2

REPORT INFORMATION
  Report Type: 
  Country: None (occurrence: None)
  Receive Date: 20100421
  Receipt Date: 20100421
  Transmission Date: 20101027
  Serious: Yes (Other)
  Sender: FDA-Public Use
  Company Number: None

PATIENT
  Age: 69 Year
  Sex: Female
  Weight: 48.9885 kg

DRUGS (1)
  1. BONIVA [Suspect]
     Indication: OSTEOPOROSIS
     Dosage: 1 PILL 1 PER MONTH PO
     Route: 048
     Dates: start: 20100111, end: 20100111

REACTIONS (2)
  - BONE PAIN [None]
  - PAIN IN EXTREMITY [None]
